FAERS Safety Report 26117356 (Version 2)
Quarter: 2025Q4

REPORT INFORMATION
  Report Type: Spontaneous
  Country: US (occurrence: US)
  Receive Date: 20251203
  Receipt Date: 20251204
  Transmission Date: 20260117
  Serious: No
  Sender: BELCHER PHARMACEUTICALS
  Company Number: US-BPI LABS, LLC-2025US004769

PATIENT

DRUGS (5)
  1. SEMAGLUTIDE [Suspect]
     Active Substance: SEMAGLUTIDE
     Indication: Product used for unknown indication
     Dosage: MONTH 1 (WEEKS 1-4): 8 UNITS (0.2 MG), 1/WEEK
     Route: 065
  2. SEMAGLUTIDE [Suspect]
     Active Substance: SEMAGLUTIDE
     Dosage: MONTH 2 (WEEKS 5-8): 16 UNITS (0.4 MG), 1/WEEK
     Route: 065
  3. SEMAGLUTIDE [Suspect]
     Active Substance: SEMAGLUTIDE
     Dosage: MONTH 3 (WEEKS 9-12): 30 UNITS (0.75 MG), 1/WEEK
     Route: 065
  4. SEMAGLUTIDE [Suspect]
     Active Substance: SEMAGLUTIDE
     Dosage: MONTH 4 (WEEKS 13-16): 50 UNITS (1.25 MG), 1/WEEK
     Route: 065
  5. SEMAGLUTIDE [Suspect]
     Active Substance: SEMAGLUTIDE
     Dosage: MONTH 5 (WEEKS 17+): 60 UNITS (1.5 MG) THEREAFTER, 1/WEEK
     Route: 065

REACTIONS (3)
  - Urticaria [Unknown]
  - Drug ineffective [Unknown]
  - Product complaint [Unknown]

NARRATIVE: CASE EVENT DATE: 20250904
